FAERS Safety Report 6646998-2 (Version None)
Quarter: 2010Q1

REPORT INFORMATION
  Report Type: 
  Country: None (occurrence: None)
  Receive Date: 20100323
  Receipt Date: 20100311
  Transmission Date: 20100710
  Serious: Yes (Disabling)
  Sender: FDA-Public Use
  Company Number: US-WYE-H14058110

PATIENT
  Sex: Female

DRUGS (1)
  1. EFFEXOR XR [Suspect]
     Indication: DEPRESSION
     Dosage: STARTED 3-4 YEARS AGO AT 300MG DAILY, STARTED TAPERING OVER A TWO WEEK PERIOD AT AN UNSPECIFIED DOSE
     Route: 048
     Dates: end: 20100309

REACTIONS (5)
  - CONFUSIONAL STATE [None]
  - COORDINATION ABNORMAL [None]
  - CRYING [None]
  - DRUG WITHDRAWAL SYNDROME [None]
  - PARAESTHESIA [None]
